FAERS Safety Report 5060726-6 (Version None)
Quarter: 2006Q3

REPORT INFORMATION
  Report Type: 
  Country: None (occurrence: None)
  Receive Date: 20060725
  Receipt Date: 20060714
  Transmission Date: 20061208
  Serious: Yes (Death)
  Sender: FDA-Public Use
  Company Number: IN-NOVOPROD-255202

PATIENT
  Age: 65 Year
  Sex: Female
  Weight: 55 kg

DRUGS (3)
  1. INSULATARD NOVOLET [Suspect]
     Indication: INSULIN-REQUIRING TYPE II DIABETES MELLITUS
     Dosage: 15 U, UNK
     Route: 058
     Dates: start: 20050610, end: 20050612
  2. INSULATARD NOVOLET [Suspect]
     Dosage: 15 U, UNK
     Route: 058
     Dates: start: 20060612
  3. VITAMINS [Concomitant]

REACTIONS (1)
  - DEATH [None]
